FAERS Safety Report 11945065 (Version 1)
Quarter: 2016Q1

REPORT INFORMATION
  Report Type: Spontaneous
  Country: FR (occurrence: FR)
  Receive Date: 20160125
  Receipt Date: 20160125
  Transmission Date: 20160526
  Serious: Yes (Hospitalization)
  Sender: FDA-Public Use
  Company Number: FR-PFIZER INC-2016028869

PATIENT
  Age: 64 Year
  Sex: Female

DRUGS (6)
  1. EFFEXOR LP [Suspect]
     Active Substance: VENLAFAXINE HYDROCHLORIDE
     Dosage: 20 DF OF 75 MG, SINGLE
     Route: 048
     Dates: start: 20151112, end: 20151112
  2. ANAFRANIL [Suspect]
     Active Substance: CLOMIPRAMINE HYDROCHLORIDE
     Dosage: UNK
     Route: 048
     Dates: start: 20151112, end: 20151112
  3. TEMESTA [Suspect]
     Active Substance: LORAZEPAM
     Dosage: 30 DF OF 2.5 MG, SINGLE
     Route: 048
     Dates: start: 20151112, end: 20151112
  4. COVERAM [Suspect]
     Active Substance: AMLODIPINE\PERINDOPRIL
     Dosage: 30 DF OF [AMLODIPINE BESYLATE 5 MG]/[PERINDOPRIL ARGININE 10 MG], SINGLE
     Route: 048
     Dates: start: 20151112, end: 20151112
  5. MIANSERIN HYDROCHLORIDE [Suspect]
     Active Substance: MIANSERIN HYDROCHLORIDE
     Dosage: 10 DF OF 30 MG, SINGLE
     Route: 048
     Dates: start: 20151112, end: 20151112
  6. CRESTOR [Suspect]
     Active Substance: ROSUVASTATIN CALCIUM
     Dosage: 30 DF OF 5 MG, SINGLE
     Route: 048
     Dates: start: 20151112, end: 20151112

REACTIONS (3)
  - Shock [Recovered/Resolved]
  - Intentional overdose [Recovered/Resolved]
  - Cardiogenic shock [Recovered/Resolved]

NARRATIVE: CASE EVENT DATE: 20151112
